FAERS Safety Report 5374543-0 (Version None)
Quarter: 2007Q2

REPORT INFORMATION
  Report Type: 
  Country: None (occurrence: None)
  Receive Date: 20070629
  Receipt Date: 20070626
  Transmission Date: 20071010
  Serious: Yes (Other)
  Sender: FDA-Public Use
  Company Number: JP-AVENTIS-200711676JP

PATIENT
  Age: 70 Year
  Sex: Female

DRUGS (4)
  1. ALLEGRA [Suspect]
     Route: 048
  2. CLARITHROMYCIN [Concomitant]
  3. MUCODYNE [Concomitant]
  4. INTERFERON [Concomitant]

REACTIONS (1)
  - RETINAL HAEMORRHAGE [None]
